FAERS Safety Report 8941180 (Version 1)
Quarter: 2012Q4

REPORT INFORMATION
  Report Type: Report from Study
  Country: DE (occurrence: DE)
  Receive Date: 20121203
  Receipt Date: 20121203
  Transmission Date: 20130627
  Serious: Yes (Other)
  Sender: FDA-Public Use
  Company Number: DE-ROCHE-1161863

PATIENT
  Age: 43 Year
  Sex: Male

DRUGS (5)
  1. BEVACIZUMAB [Suspect]
     Indication: METASTATIC BRONCHIAL CARCINOMA
     Route: 065
     Dates: start: 200707, end: 200712
  2. BEVACIZUMAB [Suspect]
     Route: 065
     Dates: start: 200801, end: 201206
  3. GEMCITABINE [Concomitant]
     Indication: METASTATIC BRONCHIAL CARCINOMA
     Route: 065
     Dates: start: 200707, end: 200712
  4. CISPLATIN [Concomitant]
     Indication: METASTATIC BRONCHIAL CARCINOMA
     Route: 065
     Dates: start: 200707, end: 201212
  5. EFEROX [Concomitant]
     Indication: GOITRE
     Route: 065
     Dates: start: 200412

REACTIONS (3)
  - Renal failure [Not Recovered/Not Resolved]
  - Pneumonia [Recovered/Resolved]
  - Diverticulitis [Recovered/Resolved]
